FAERS Safety Report 13035354 (Version 1)
Quarter: 2016Q4

REPORT INFORMATION
  Report Type: Spontaneous
  Country: US (occurrence: US)
  Receive Date: 20161216
  Receipt Date: 20161216
  Transmission Date: 20170207
  Serious: No
  Sender: FDA-Public Use
  Company Number: US-BAYER-2016-237894

PATIENT
  Age: 84 Year
  Sex: Female
  Weight: 77.1 kg

DRUGS (2)
  1. BLOOD PRESSURE MEDICATION (NOS) [Concomitant]
     Active Substance: UNSPECIFIED INGREDIENT
  2. MIRALAX [Suspect]
     Active Substance: POLYETHYLENE GLYCOL 3350
     Indication: CONSTIPATION
     Dosage: 1/2 DOSE
     Route: 048
     Dates: start: 201611, end: 20161212

REACTIONS (2)
  - Product use issue [Unknown]
  - Expired product administered [Unknown]
